FAERS Safety Report 23265657 (Version 1)
Quarter: 2023Q4

REPORT INFORMATION
  Report Type: Spontaneous
  Country: US (occurrence: None)
  Receive Date: 20231206
  Receipt Date: 20231206
  Transmission Date: 20240109
  Serious: No
  Sender: FDA-Public Use
  Company Number: 2023A264263

PATIENT

DRUGS (1)
  1. BREZTRI [Suspect]
     Active Substance: BUDESONIDE\FORMOTEROL\GLYCOPYRROLATE
     Route: 055

REACTIONS (8)
  - Bronchitis [Unknown]
  - Headache [Unknown]
  - Exophthalmos [Unknown]
  - Loss of consciousness [Unknown]
  - Sleep disorder [Unknown]
  - Dyspnoea [Unknown]
  - Wheezing [Unknown]
  - Device use issue [Unknown]
